FAERS Safety Report 6543927-7 (Version None)
Quarter: 2010Q1

REPORT INFORMATION
  Report Type: 
  Country: None (occurrence: None)
  Receive Date: 20100120
  Receipt Date: 20100115
  Transmission Date: 20100710
  Serious: Yes (Other)
  Sender: FDA-Public Use
  Company Number: US-ELI_LILLY_AND_COMPANY-US201001003344

PATIENT
  Sex: Female

DRUGS (3)
  1. HUMALOG [Suspect]
     Indication: DIABETES MELLITUS
     Dosage: UNK, 3/D
  2. HUMALOG [Suspect]
  3. LANTUS [Concomitant]

REACTIONS (6)
  - BLINDNESS UNILATERAL [None]
  - DRUG DISPENSING ERROR [None]
  - NASOPHARYNGITIS [None]
  - PROCEDURAL COMPLICATION [None]
  - VISUAL ACUITY REDUCED [None]
  - VISUAL IMPAIRMENT [None]
